FAERS Safety Report 13541263 (Version 1)
Quarter: 2017Q2

REPORT INFORMATION
  Report Type: Spontaneous
  Country: US (occurrence: US)
  Receive Date: 20170512
  Receipt Date: 20170512
  Transmission Date: 20170830
  Serious: Yes (Other)
  Sender: FDA-Public Use
  Company Number: US-IMPAX LABORATORIES, INC-2017-IPXL-01259

PATIENT
  Age: 71 Year
  Sex: Female

DRUGS (11)
  1. CARBIDOPA-LEVODOPA ER [Suspect]
     Active Substance: CARBIDOPA\LEVODOPA
     Dosage: (25/100MG) 1 DF, 6 /DAY
     Route: 065
     Dates: start: 2011
  2. VENLAFAXINE XR [Concomitant]
     Active Substance: VENLAFAXINE HYDROCHLORIDE
     Indication: PRODUCT USED FOR UNKNOWN INDICATION
     Dosage: 225 MG, DAILY
     Route: 065
     Dates: start: 2010
  3. CARBIDOPA-LEVODOPA ER [Suspect]
     Active Substance: CARBIDOPA\LEVODOPA
     Dosage: (25/100 MG) 1 DF, 3 /DAY
     Route: 065
     Dates: start: 2012
  4. CARBIDOPA-LEVODOPA ER [Suspect]
     Active Substance: CARBIDOPA\LEVODOPA
     Dosage: TAPERED DOWN, UNK
     Route: 065
  5. DIVALPROEX SODIUM ER [Suspect]
     Active Substance: DIVALPROEX SODIUM
     Dosage: 500 MG, 2 /DAY
     Route: 065
     Dates: start: 2011
  6. DIVALPROEX SODIUM ER [Suspect]
     Active Substance: DIVALPROEX SODIUM
     Indication: BIPOLAR DISORDER
     Dosage: UNK
     Route: 065
     Dates: start: 1999
  7. DIVALPROEX SODIUM ER [Suspect]
     Active Substance: DIVALPROEX SODIUM
     Dosage: 500 MG DURING THE DAY AND 750 MG AT NIGHT
     Route: 065
     Dates: start: 2010
  8. DIVALPROEX SODIUM ER [Suspect]
     Active Substance: DIVALPROEX SODIUM
     Dosage: TAPERED DOWN, UNK
     Route: 065
  9. CARBIDOPA-LEVODOPA ER [Suspect]
     Active Substance: CARBIDOPA\LEVODOPA
     Indication: PARKINSONISM
     Dosage: TOTAL DAILY DOSE OF 300 MG LEVODOPA, UNK
     Route: 065
     Dates: start: 2007
  10. CARBIDOPA-LEVODOPA ER [Suspect]
     Active Substance: CARBIDOPA\LEVODOPA
     Dosage: 25 MG/100 MG, 1 TABLET FOUR TIMES A DAY
     Route: 065
     Dates: start: 2010
  11. CLONAZEPAM. [Concomitant]
     Active Substance: CLONAZEPAM
     Indication: PRODUCT USED FOR UNKNOWN INDICATION
     Dosage: 0.25 MG DURING THE DAY AND 0.5 MG AT BEDTIME
     Route: 065
     Dates: start: 2010

REACTIONS (10)
  - Parkinsonism [Recovered/Resolved]
  - Hallucination, auditory [Recovered/Resolved]
  - Fatigue [Recovered/Resolved]
  - Dementia [Recovered/Resolved]
  - Somnolence [Recovered/Resolved]
  - Dysphoria [Recovered/Resolved]
  - Insomnia [Recovered/Resolved]
  - Cognitive disorder [Recovered/Resolved]
  - Fall [Recovered/Resolved]
  - Drug ineffective for unapproved indication [Unknown]

NARRATIVE: CASE EVENT DATE: 2007
